FAERS Safety Report 4404507-2 (Version None)
Quarter: 2004Q3

REPORT INFORMATION
  Report Type: 
  Country: None (occurrence: None)
  Receive Date: 20040720
  Receipt Date: 20040707
  Transmission Date: 20050211
  Serious: Yes (Hospitalization)
  Sender: FDA-Public Use
  Company Number: 2004045505

PATIENT
  Age: 54 Year
  Sex: Female

DRUGS (4)
  1. LIPITOR [Suspect]
     Indication: HYPERLIPIDAEMIA
     Dosage: 5 MG (1 IN 1 D), ORAL
     Route: 048
     Dates: start: 20021201, end: 20040621
  2. PILSICAINIDE HYDROCHLORIDE [Concomitant]
  3. CANDESARTAN CILEXETIL [Concomitant]
  4. WARFARIN POTASSIUM [Concomitant]

REACTIONS (2)
  - IDIOPATHIC THROMBOCYTOPENIC PURPURA [None]
  - INTERNATIONAL NORMALISED RATIO DECREASED [None]
